FAERS Safety Report 25078276 (Version 1)
Quarter: 2025Q1

REPORT INFORMATION
  Report Type: Spontaneous
  Country: JP (occurrence: JP)
  Receive Date: 20250314
  Receipt Date: 20250314
  Transmission Date: 20250409
  Serious: Yes (Life-Threatening, Other)
  Sender: JOHNSON AND JOHNSON
  Company Number: JP-BAYER-2024A172748

PATIENT
  Age: 84 Year
  Sex: Female

DRUGS (1)
  1. XARELTO [Suspect]
     Active Substance: RIVAROXABAN
     Indication: Atrial fibrillation
     Route: 048
     Dates: start: 20231125, end: 20240206

REACTIONS (2)
  - Cerebellar haemorrhage [Recovered/Resolved with Sequelae]
  - Altered state of consciousness [Unknown]

NARRATIVE: CASE EVENT DATE: 20240206
